FAERS Safety Report 7709145-1 (Version None)
Quarter: 2011Q3

REPORT INFORMATION
  Report Type: 
  Country: None (occurrence: None)
  Receive Date: 20110825
  Receipt Date: 20110815
  Transmission Date: 20111222
  Serious: Yes (Hospitalization, Other)
  Sender: FDA-Public Use
  Company Number: US-JNJFOC-20110808984

PATIENT
  Sex: Female
  Weight: 91.63 kg

DRUGS (3)
  1. HALDOL [Suspect]
     Indication: SCHIZOPHRENIA
     Dosage: FOR FIVE MONTHS
     Route: 030
     Dates: start: 19760101
  2. RISPERDAL [Suspect]
     Indication: SCHIZOPHRENIA
     Route: 048
     Dates: end: 20110801
  3. RISPERDAL [Suspect]
     Route: 048

REACTIONS (5)
  - INCORRECT DOSE ADMINISTERED [None]
  - SCHIZOPHRENIA [None]
  - FEELING ABNORMAL [None]
  - UNEVALUABLE EVENT [None]
  - READING DISORDER [None]
